FAERS Safety Report 7938413-3 (Version None)
Quarter: 2011Q4

REPORT INFORMATION
  Report Type: 
  Country: None (occurrence: None)
  Receive Date: 20111123
  Receipt Date: 20111121
  Transmission Date: 20120403
  Serious: Yes (Death, Hospitalization, Other)
  Sender: FDA-Public Use
  Company Number: US-AMGEN-QUU435479

PATIENT
  Age: 90 Year
  Sex: Male

DRUGS (1)
  1. NPLATE [Suspect]
     Indication: THROMBOCYTOPENIA
     Dosage: 116 MUG, UNK
     Dates: start: 20100614, end: 20110628

REACTIONS (4)
  - RENAL FAILURE CHRONIC [None]
  - HYPERTENSION [None]
  - HOSPITALISATION [None]
  - SEPTIC SHOCK [None]
